FAERS Safety Report 24136741 (Version 1)
Quarter: 2024Q3

REPORT INFORMATION
  Report Type: Spontaneous
  Country: US (occurrence: None)
  Receive Date: 20240725
  Receipt Date: 20240725
  Transmission Date: 20241017
  Serious: Yes (Hospitalization)
  Sender: Public
  Company Number: None

PATIENT
  Age: 64 Year
  Sex: Male
  Weight: 84 kg

DRUGS (1)
  1. CISPLATIN [Suspect]
     Active Substance: CISPLATIN
     Dates: end: 20240701

REACTIONS (12)
  - Atrial fibrillation [None]
  - Syncope [None]
  - Dysphagia [None]
  - Fatigue [None]
  - Tachycardia [None]
  - Pyrexia [None]
  - Human rhinovirus test positive [None]
  - Enterovirus test positive [None]
  - Pneumonia aspiration [None]
  - Rash pruritic [None]
  - Haemoglobin decreased [None]
  - Dermatitis contact [None]

NARRATIVE: CASE EVENT DATE: 20240708
